FAERS Safety Report 5080779-9 (Version None)
Quarter: 2006Q3

REPORT INFORMATION
  Report Type: 
  Country: None (occurrence: None)
  Receive Date: 20060809
  Receipt Date: 20060725
  Transmission Date: 20061208
  Serious: Yes (Death)
  Sender: FDA-Public Use
  Company Number: 200613211GDS

PATIENT
  Age: 24 Month
  Sex: Female

DRUGS (6)
  1. DACARBAZINE [Suspect]
     Indication: RHABDOMYOSARCOMA
  2. VINCRISTINE [Suspect]
     Indication: RHABDOMYOSARCOMA
  3. CYCLOPHOSPHAMIDE [Suspect]
     Indication: RHABDOMYOSARCOMA
  4. CISPLATIN [Suspect]
     Indication: RHABDOMYOSARCOMA
  5. DACTINOMYCIN [Suspect]
     Indication: RHABDOMYOSARCOMA
  6. ADRIAMYCIN PFS [Suspect]
     Indication: RHABDOMYOSARCOMA

REACTIONS (2)
  - ACUTE MYELOID LEUKAEMIA [None]
  - TREATMENT RELATED SECONDARY MALIGNANCY [None]
